FAERS Safety Report 17508813 (Version 1)
Quarter: 2020Q1

REPORT INFORMATION
  Report Type: Spontaneous
  Country: US (occurrence: US)
  Receive Date: 20200306
  Receipt Date: 20200306
  Transmission Date: 20200409
  Serious: Yes (Other)
  Sender: FDA-Public Use
  Company Number: US-PFIZER INC-2020097825

PATIENT

DRUGS (1)
  1. GLYNASE [Suspect]
     Active Substance: GLYBURIDE
     Dosage: UNK

REACTIONS (4)
  - Urological examination abnormal [Unknown]
  - Renal cancer [Unknown]
  - Coronary artery disease [Unknown]
  - Spinal stenosis [Unknown]
